FAERS Safety Report 6259105-5 (Version None)
Quarter: 2009Q3

REPORT INFORMATION
  Report Type: 
  Country: None (occurrence: None)
  Receive Date: 20090702
  Receipt Date: 20090629
  Transmission Date: 20100115
  Serious: Yes (Other)
  Sender: FDA-Public Use
  Company Number: OSCN-PR-0906S-0324

PATIENT
  Sex: Male

DRUGS (2)
  1. OMNISCAN [Suspect]
     Indication: DRUG USE FOR UNKNOWN INDICATION
     Dosage: MULTIPLE UNSPECIFIED;  BETWEEN 1998-2004
     Dates: start: 19980101, end: 20040101
  2. GADOPENTETATE DIMEGLUMINE (MAGNEVIST) [Concomitant]

REACTIONS (4)
  - NEPHROGENIC SYSTEMIC FIBROSIS [None]
  - PERICARDITIS [None]
  - PERITONEAL DIALYSIS [None]
  - RENAL FAILURE CHRONIC [None]
